FAERS Safety Report 26007039 (Version 1)
Quarter: 2025Q4

REPORT INFORMATION
  Report Type: Spontaneous
  Country: US (occurrence: US)
  Receive Date: 20251106
  Receipt Date: 20251106
  Transmission Date: 20260118
  Serious: Yes (Life-Threatening, Hospitalization)
  Sender: PFIZER
  Company Number: US-PFIZER INC-202500215031

PATIENT
  Age: 73 Year
  Sex: Female

DRUGS (1)
  1. PACLITAXEL [Suspect]
     Active Substance: PACLITAXEL
     Indication: Uterine cancer
     Dosage: 175 MG/M2
     Dates: start: 20251029, end: 20251029

REACTIONS (6)
  - Abdominal pain [Unknown]
  - Pruritus [Unknown]
  - Dizziness [Unknown]
  - Blood pressure decreased [Recovering/Resolving]
  - Hypopnoea [Unknown]
  - Off label use [Unknown]

NARRATIVE: CASE EVENT DATE: 20251029
